FAERS Safety Report 7390075-2 (Version None)
Quarter: 2011Q2

REPORT INFORMATION
  Report Type: 
  Country: None (occurrence: None)
  Receive Date: 20110401
  Receipt Date: 20110330
  Transmission Date: 20111010
  Serious: Yes (Other)
  Sender: FDA-Public Use
  Company Number: US-PFIZER INC-2011071641

PATIENT
  Sex: Male
  Weight: 72.562 kg

DRUGS (11)
  1. ACETYLSALICYLIC ACID [Concomitant]
     Dosage: 81 MG, 2X/DAY
  2. TAMSULOSIN HYDROCHLORIDE [Concomitant]
     Dosage: 0.4 MG, 1X/DAY
  3. GLIMEPIRIDE [Concomitant]
     Indication: DIABETES MELLITUS
     Dosage: 4 MG, 1X/DAY
  4. PLAVIX [Suspect]
     Indication: STENT PLACEMENT
  5. METOPROLOL TARTRATE [Concomitant]
     Dosage: 100 MG, UNK
  6. PLAVIX [Suspect]
     Indication: MYOCARDIAL INFARCTION
     Dosage: 75 MG, 1X/DAY
     Dates: start: 20090101, end: 20110101
  7. LIPITOR [Suspect]
     Indication: MYOCARDIAL INFARCTION
     Dosage: 40 MG, 1X/DAY
     Route: 048
     Dates: start: 20090101, end: 20110101
  8. LIPITOR [Suspect]
     Indication: STENT PLACEMENT
  9. LISINOPRIL AND HYDROCHLOROTHIAZIDE [Concomitant]
     Indication: HYPERTENSION
     Dosage: 20 MG / 12.5 MG
  10. METFORMIN [Concomitant]
     Indication: DIABETES MELLITUS
     Dosage: 1000 MG, 2X/DAY
  11. PRAVASTATIN [Suspect]
     Dosage: 20 MG, 1X/DAY
     Dates: start: 20110125, end: 20110101

REACTIONS (3)
  - MUSCLE DISORDER [None]
  - PAIN IN EXTREMITY [None]
  - FATIGUE [None]
